FAERS Safety Report 15714640 (Version 1)
Quarter: 2018Q4

REPORT INFORMATION
  Report Type: Spontaneous
  Country: US (occurrence: US)
  Receive Date: 20181129
  Receipt Date: 20181129
  Transmission Date: 20190205
  Serious: No
  Sender: FDA-Public Use
  Company Number: None

PATIENT

DRUGS (2)
  1. COUMADIN [Suspect]
     Active Substance: WARFARIN SODIUM
  2. DIFLUCAN [Suspect]
     Active Substance: FLUCONAZOLE

REACTIONS (1)
  - Labelled drug-drug interaction medication error [None]

NARRATIVE: CASE EVENT DATE: 2018
